FAERS Safety Report 17917331 (Version 1)
Quarter: 2020Q2

REPORT INFORMATION
  Report Type: Spontaneous
  Country: US (occurrence: US)
  Receive Date: 20200619
  Receipt Date: 20200619
  Transmission Date: 20200714
  Serious: No
  Sender: FDA-Public Use
  Company Number: None

PATIENT
  Age: 25 Year
  Sex: Female
  Weight: 56.7 kg

DRUGS (8)
  1. ESTRIDOL [Concomitant]
  2. POTASSIUM [Concomitant]
     Active Substance: POTASSIUM
  3. HYDROCODONE/ ACETAMINOPHEN 7.5-325MG T [Suspect]
     Active Substance: ACETAMINOPHEN\HYDROCODONE
     Indication: PAIN
     Dosage: ?          QUANTITY:1 TABLET(S);?
     Route: 048
     Dates: start: 20200618
  4. VITAMIN B6 [Concomitant]
     Active Substance: PYRIDOXINE HYDROCHLORIDE
  5. ZOFRAN [Concomitant]
     Active Substance: ONDANSETRON HYDROCHLORIDE
  6. TYLENOL [Concomitant]
     Active Substance: ACETAMINOPHEN
  7. CELEBREX [Concomitant]
     Active Substance: CELECOXIB
  8. PHENEGREN [Concomitant]

REACTIONS (5)
  - Fear [None]
  - Abdominal pain upper [None]
  - Product substitution issue [None]
  - Anxiety [None]
  - Headache [None]

NARRATIVE: CASE EVENT DATE: 20200619
